FAERS Safety Report 5340618-5 (Version None)
Quarter: 2007Q2

REPORT INFORMATION
  Report Type: 
  Country: None (occurrence: None)
  Receive Date: 20070405
  Receipt Date: 20070130
  Transmission Date: 20071010
  Serious: No
  Sender: FDA-Public Use
  Company Number: US200701006081

PATIENT
  Age: 50 Year
  Sex: Male

DRUGS (2)
  1. CYMBALTA [Suspect]
     Indication: NEURALGIA
     Dosage: 50 MG, DAILY (1/D)
     Dates: start: 20061001
  2. LOTREL [Concomitant]

REACTIONS (4)
  - BURN OESOPHAGEAL [None]
  - NERVOUSNESS [None]
  - REFLUX OESOPHAGITIS [None]
  - TREMOR [None]
